FAERS Safety Report 19191279 (Version 9)
Quarter: 2025Q3

REPORT INFORMATION
  Report Type: Report from Study
  Country: CO (occurrence: CO)
  Receive Date: 20210428
  Receipt Date: 20250702
  Transmission Date: 20251021
  Serious: Yes (Life-Threatening, Other)
  Sender: INCYTE
  Company Number: CO-002147023-NVSC2021CO085671

PATIENT
  Age: 68 Year

DRUGS (26)
  1. RUXOLITINIB [Suspect]
     Active Substance: RUXOLITINIB
     Indication: Myelofibrosis
     Dosage: 20 MG, QD
     Route: 065
  2. RUXOLITINIB [Suspect]
     Active Substance: RUXOLITINIB
  3. RUXOLITINIB [Suspect]
     Active Substance: RUXOLITINIB
     Dosage: 40 MG, QD
  4. RUXOLITINIB [Suspect]
     Active Substance: RUXOLITINIB
     Dosage: 10 MG, Q12H
  5. RUXOLITINIB [Suspect]
     Active Substance: RUXOLITINIB
  6. RUXOLITINIB [Suspect]
     Active Substance: RUXOLITINIB
  7. RUXOLITINIB [Suspect]
     Active Substance: RUXOLITINIB
     Dosage: 10 MG, Q12H
  8. RUXOLITINIB [Suspect]
     Active Substance: RUXOLITINIB
     Dosage: 10 MG, Q12H
  9. RUXOLITINIB [Suspect]
     Active Substance: RUXOLITINIB
     Dosage: 5 MG, Q12H
  10. RUXOLITINIB [Suspect]
     Active Substance: RUXOLITINIB
  11. RUXOLITINIB [Suspect]
     Active Substance: RUXOLITINIB
  12. RUXOLITINIB [Suspect]
     Active Substance: RUXOLITINIB
     Dosage: 15 MG, QD (10 MG IN THE MORNING AND 5 MG IN THE AFTERNOON)
     Route: 065
  13. RUXOLITINIB [Suspect]
     Active Substance: RUXOLITINIB
     Dosage: 15 MG, QD
  14. RUXOLITINIB [Suspect]
     Active Substance: RUXOLITINIB
     Dosage: 15 MG, QD (1 TABLET OF 10 MG IN THE MORNING AND THE OTHER 5 MG AT 10 AT NIGHT)
  15. RUXOLITINIB [Suspect]
     Active Substance: RUXOLITINIB
     Dosage: 15 MG, QD
  16. RUXOLITINIB [Suspect]
     Active Substance: RUXOLITINIB
  17. RUXOLITINIB [Suspect]
     Active Substance: RUXOLITINIB
  18. RUXOLITINIB [Suspect]
     Active Substance: RUXOLITINIB
  19. RUXOLITINIB [Suspect]
     Active Substance: RUXOLITINIB
  20. RUXOLITINIB [Suspect]
     Active Substance: RUXOLITINIB
  21. RUXOLITINIB [Suspect]
     Active Substance: RUXOLITINIB
     Dosage: 5 MG, BID (5 MG IN THE MORNING AND 5 MG AT NIGH)
  22. RUXOLITINIB [Suspect]
     Active Substance: RUXOLITINIB
     Route: 065
  23. RUXOLITINIB [Suspect]
     Active Substance: RUXOLITINIB
     Route: 065
  24. RUXOLITINIB [Suspect]
     Active Substance: RUXOLITINIB
  25. LOSARTAN [Suspect]
     Active Substance: LOSARTAN
     Indication: Hypertension
  26. LEVOTHYROXINE [Concomitant]
     Active Substance: LEVOTHYROXINE
     Indication: Hyperthyroidism
     Dosage: 50 MG, QD (ONE HOUR BEFORE BREAKFAST), (8 YEARS AGO APPROXIMATELY)

REACTIONS (24)
  - Hypersensitivity [Unknown]
  - Inappropriate schedule of product administration [Unknown]
  - Influenza [Unknown]
  - Product supply issue [Unknown]
  - Haematocrit decreased [Recovered/Resolved]
  - Haematocrit increased [Recovered/Resolved]
  - Haemoglobin decreased [Unknown]
  - Haemoglobin abnormal [Recovered/Resolved]
  - Full blood count decreased [Recovered/Resolved]
  - Haematocrit increased [Unknown]
  - Haemoglobin increased [Unknown]
  - Pruritus [Unknown]
  - White blood cell count decreased [Unknown]
  - Contusion [Unknown]
  - Migraine [Unknown]
  - Ear pain [Recovered/Resolved]
  - Platelet count increased [Unknown]
  - Platelet count decreased [Unknown]
  - Off label use [Unknown]
  - Expired product administered [Unknown]
  - Haemorrhage [Unknown]
  - Headache [Unknown]
  - Blood viscosity abnormal [Unknown]
  - Viral infection [Unknown]
